FAERS Safety Report 7620436-5 (Version None)
Quarter: 2011Q3

REPORT INFORMATION
  Report Type: 
  Country: None (occurrence: None)
  Receive Date: 20110719
  Receipt Date: 20110715
  Transmission Date: 20111222
  Serious: Yes (Other)
  Sender: FDA-Public Use
  Company Number: JP-JNJFOC-20110705915

PATIENT
  Age: 27 Year
  Sex: Female

DRUGS (2)
  1. TOPIRAMATE [Suspect]
     Route: 048
     Dates: start: 20100416
  2. TOPIRAMATE [Suspect]
     Indication: EPILEPSY
     Route: 048
     Dates: start: 20100305, end: 20100415

REACTIONS (1)
  - HALLUCINATION, AUDITORY [None]
